FAERS Safety Report 8346148-0 (Version None)
Quarter: 2012Q2

REPORT INFORMATION
  Report Type: 
  Country: None (occurrence: None)
  Receive Date: 20120509
  Receipt Date: 20120502
  Transmission Date: 20120825
  Serious: Yes (Hospitalization)
  Sender: FDA-Public Use
  Company Number: JP-CELGENEUS-087-C5013-12050115

PATIENT
  Sex: Male
  Weight: 49.95 kg

DRUGS (2)
  1. LENALIDOMIDE [Suspect]
     Dosage: 25 MILLIGRAM
     Route: 065
     Dates: start: 20120426, end: 20120502
  2. LENALIDOMIDE [Suspect]
     Indication: PERIPHERAL T-CELL LYMPHOMA UNSPECIFIED

REACTIONS (1)
  - DISSEMINATED INTRAVASCULAR COAGULATION [None]
